FAERS Safety Report 24449227 (Version 1)
Quarter: 2024Q4

REPORT INFORMATION
  Report Type: Spontaneous
  Country: MX (occurrence: MX)
  Receive Date: 20241017
  Receipt Date: 20241017
  Transmission Date: 20250115
  Serious: Yes (Other)
  Sender: JOHNSON AND JOHNSON
  Company Number: MX-JNJFOC-20241033027

PATIENT
  Age: 59 Year
  Sex: Male

DRUGS (2)
  1. SIMPONI [Suspect]
     Active Substance: GOLIMUMAB
     Indication: Rheumatoid arthritis
     Route: 058
  2. DEFLAZACORT [Suspect]
     Active Substance: DEFLAZACORT
     Indication: Rheumatoid arthritis
     Route: 065

REACTIONS (1)
  - Kaposi^s sarcoma [Recovered/Resolved]
